FAERS Safety Report 25652535 (Version 2)
Quarter: 2025Q3

REPORT INFORMATION
  Report Type: Report from Study
  Country: US (occurrence: US)
  Receive Date: 20250807
  Receipt Date: 20250919
  Transmission Date: 20251020
  Serious: No
  Sender: SUNOVION
  Company Number: US-SUMITOMO PHARMA SWITZERLAND GMBH-2025SPA006185

PATIENT
  Age: 83 Year
  Sex: Male

DRUGS (24)
  1. ORGOVYX [Suspect]
     Active Substance: RELUGOLIX
     Indication: Prostate cancer
     Dosage: 360 MG, SINGLE
     Route: 048
     Dates: start: 20250509, end: 20250509
  2. ORGOVYX [Suspect]
     Active Substance: RELUGOLIX
     Dosage: 120 MG, QD
     Route: 048
     Dates: start: 20250510
  3. ATORVASTATIN [Concomitant]
     Active Substance: ATORVASTATIN
  4. CARVEDILOL [Concomitant]
     Active Substance: CARVEDILOL
  5. MINERALS\VITAMINS [Concomitant]
     Active Substance: MINERALS\VITAMINS
  6. CITRUCEL [Concomitant]
     Active Substance: METHYLCELLULOSE (4000 CPS)
  7. COLACE [Concomitant]
     Active Substance: DOCUSATE SODIUM
  8. DICYCLOMINE [Concomitant]
     Active Substance: DICYCLOMINE HYDROCHLORIDE
  9. Dulcolax [Concomitant]
  10. EZETIMIBE [Concomitant]
     Active Substance: EZETIMIBE
  11. FERROUS SULFATE [Concomitant]
     Active Substance: FERROUS SULFATE
  12. Gas x total relief maximum strength [Concomitant]
  13. MELOXICAM [Concomitant]
     Active Substance: MELOXICAM
  14. METFORMIN [Concomitant]
     Active Substance: METFORMIN HYDROCHLORIDE
  15. PERCOCET [Concomitant]
     Active Substance: ACETAMINOPHEN\OXYCODONE HYDROCHLORIDE
  16. PRILOSEC [Concomitant]
     Active Substance: OMEPRAZOLE MAGNESIUM
  17. ACETAMINOPHEN [Concomitant]
     Active Substance: ACETAMINOPHEN
  18. MELATONIN [Concomitant]
     Active Substance: MELATONIN
  19. ASPIRIN [Concomitant]
     Active Substance: ASPIRIN
  20. TADALAFIL [Concomitant]
     Active Substance: TADALAFIL
  21. TAMSULOSIN [Concomitant]
     Active Substance: TAMSULOSIN
  22. TEMAZEPAM [Concomitant]
     Active Substance: TEMAZEPAM
  23. VITAMIN C [Concomitant]
     Active Substance: ASCORBIC ACID
  24. VITAMINS [Concomitant]
     Active Substance: VITAMINS

REACTIONS (3)
  - Fatigue [Unknown]
  - Arthritis [Not Recovered/Not Resolved]
  - Constipation [Unknown]
